FAERS Safety Report 21626775 (Version 1)
Quarter: 2022Q4

REPORT INFORMATION
  Report Type: Report from Study
  Country: US (occurrence: US)
  Receive Date: 20221122
  Receipt Date: 20221122
  Transmission Date: 20230113
  Serious: Yes (Other)
  Sender: FDA-Public Use
  Company Number: US-ABBVIE-4208914

PATIENT
  Age: 63 Year
  Sex: Male

DRUGS (1)
  1. CREON [Suspect]
     Active Substance: PANCRELIPASE AMYLASE\PANCRELIPASE LIPASE\PANCRELIPASE PROTEASE
     Indication: Product used for unknown indication
     Route: 048

REACTIONS (6)
  - Surgery [Unknown]
  - Intestinal obstruction [Unknown]
  - Pancreatitis chronic [Unknown]
  - Nausea [Unknown]
  - Chronic obstructive pulmonary disease [Unknown]
  - Ileus [Unknown]

NARRATIVE: CASE EVENT DATE: 20220201
